FAERS Safety Report 23887584 (Version 1)
Quarter: 2024Q2

REPORT INFORMATION
  Report Type: Report from Study
  Country: US (occurrence: US)
  Receive Date: 20240523
  Receipt Date: 20240523
  Transmission Date: 20240716
  Serious: No
  Sender: FDA-Public Use
  Company Number: US-SANDOZ-SDZ2024US050454

PATIENT
  Sex: Female

DRUGS (4)
  1. OMNITROPE [Suspect]
     Active Substance: SOMATROPIN
     Dosage: 5 MG / 1.5 ML SOLUTION FOR INJECTION
     Route: 065
  2. OMNITROPE [Suspect]
     Active Substance: SOMATROPIN
     Dosage: 5 MG / 1.5 ML SOLUTION FOR INJECTION
     Route: 065
  3. OMNITROPE [Suspect]
     Active Substance: SOMATROPIN
     Indication: Product used for unknown indication
     Dosage: 5 MG / 1.5 ML SOLUTION FOR INJECTION
     Route: 065
  4. OMNITROPE [Suspect]
     Active Substance: SOMATROPIN
     Indication: Product used for unknown indication
     Dosage: 5 MG / 1.5 ML SOLUTION FOR INJECTION
     Route: 065

REACTIONS (3)
  - Wrong technique in device usage process [Unknown]
  - Product use issue [Unknown]
  - Device leakage [Unknown]
